FAERS Safety Report 22140019 (Version 1)
Quarter: 2023Q1

REPORT INFORMATION
  Report Type: Spontaneous
  Country: US (occurrence: US)
  Receive Date: 20230327
  Receipt Date: 20230327
  Transmission Date: 20230418
  Serious: No
  Sender: FDA-Public Use
  Company Number: US-VIIV HEALTHCARE LIMITED-US2023AMR041991

PATIENT
  Sex: Male

DRUGS (4)
  1. RILPIVIRINE [Suspect]
     Active Substance: RILPIVIRINE
     Indication: Antiretroviral therapy
     Dosage: UNK UNK, Z:EVERY 2 MONTH
     Route: 065
  2. CABOTEGRAVIR [Suspect]
     Active Substance: CABOTEGRAVIR
     Indication: Antiretroviral therapy
     Dosage: UNK UNK, Z:EVERY 2 MONTH
     Route: 065
  3. VOCABRIA [Concomitant]
     Active Substance: CABOTEGRAVIR SODIUM
     Indication: Antiretroviral therapy
     Route: 048
     Dates: start: 202211
  4. EDURANT [Concomitant]
     Active Substance: RILPIVIRINE HYDROCHLORIDE
     Indication: Antiretroviral therapy
     Dosage: UNK
     Route: 048

REACTIONS (1)
  - CD4 lymphocytes decreased [Unknown]
